FAERS Safety Report 8814790 (Version 2)
Quarter: 2012Q4

REPORT INFORMATION
  Report Type: 
  Country: US (occurrence: US)
  Receive Date: 20120928
  Receipt Date: 20121025
  Transmission Date: 20130627
  Serious: No
  Sender: FDA-Public Use
  Company Number: US-TEVA-361366USA

PATIENT

DRUGS (1)
  1. AZILECT [Suspect]

REACTIONS (1)
  - Peripheral vascular disorder [Unknown]
